FAERS Safety Report 6813804-2 (Version None)
Quarter: 2010Q3

REPORT INFORMATION
  Report Type: 
  Country: None (occurrence: None)
  Receive Date: 20100702
  Receipt Date: 20090721
  Transmission Date: 20110219
  Serious: Yes (Death, Other)
  Sender: FDA-Public Use
  Company Number: US-ASTRAZENECA-2007UW03181

PATIENT
  Age: 18824 Day
  Sex: Female
  Weight: 71.2 kg

DRUGS (7)
  1. SEROQUEL [Suspect]
     Route: 048
     Dates: start: 20050415
  2. LOPID [Concomitant]
     Dates: start: 20050415
  3. CRESTOR [Concomitant]
     Dates: start: 20050415
  4. VERAPAMIL EXTENDED-RELEASE [Concomitant]
     Dates: start: 20050415
  5. LISINOPRIL [Concomitant]
     Dates: start: 20050415
  6. ASPIRIN [Concomitant]
     Dates: start: 20050415
  7. PAXIL [Concomitant]
     Dates: start: 20050415

REACTIONS (8)
  - DEATH [None]
  - DIABETES MELLITUS [None]
  - DIABETIC COMA [None]
  - DIABETIC KETOACIDOSIS [None]
  - DIABETIC NEUROPATHY [None]
  - HYPERGLYCAEMIA [None]
  - PANCREATITIS [None]
  - TYPE 2 DIABETES MELLITUS [None]
